FAERS Safety Report 7588844-9 (Version None)
Quarter: 2011Q3

REPORT INFORMATION
  Report Type: 
  Country: None (occurrence: None)
  Receive Date: 20110705
  Receipt Date: 20110624
  Transmission Date: 20111222
  Serious: Yes (Death)
  Sender: FDA-Public Use
  Company Number: MX-SANOFI-AVENTIS-2011SA040514

PATIENT
  Age: 65 Year
  Sex: Female

DRUGS (2)
  1. AMARYL [Suspect]
     Indication: TYPE 2 DIABETES MELLITUS
     Route: 048
     Dates: start: 20090101, end: 20101228
  2. ADALAT [Concomitant]
     Route: 048
     Dates: start: 20050101, end: 20101228

REACTIONS (5)
  - MYOCARDIAL INFARCTION [None]
  - CHEST PAIN [None]
  - SENSE OF OPPRESSION [None]
  - HYPERGLYCAEMIA [None]
  - HYPERHIDROSIS [None]
